FAERS Safety Report 7765543-1 (Version None)
Quarter: 2011Q3

REPORT INFORMATION
  Report Type: 
  Country: None (occurrence: None)
  Receive Date: 20110921
  Receipt Date: 20110919
  Transmission Date: 20111222
  Serious: No
  Sender: FDA-Public Use
  Company Number: US-PFIZER INC-2011203458

PATIENT
  Sex: Female
  Weight: 52.154 kg

DRUGS (1)
  1. ADVIL LIQUI-GELS [Suspect]
     Indication: PAIN
     Dosage: 400 MG, UNK
     Route: 048
     Dates: start: 20110830

REACTIONS (3)
  - PAIN [None]
  - SWELLING [None]
  - RASH ERYTHEMATOUS [None]
